FAERS Safety Report 6697352-9 (Version None)
Quarter: 2010Q2

REPORT INFORMATION
  Report Type: 
  Country: None (occurrence: None)
  Receive Date: 20100426
  Receipt Date: 20100416
  Transmission Date: 20101027
  Serious: Yes (Hospitalization)
  Sender: FDA-Public Use
  Company Number: CA-ABBOTT-10P-028-0639091-00

PATIENT
  Sex: Male
  Weight: 93 kg

DRUGS (3)
  1. MAVIK [Suspect]
     Indication: ESSENTIAL HYPERTENSION
     Dosage: 2MG DAILY
     Route: 048
     Dates: start: 20091202
  2. MAVIK [Suspect]
     Dosage: 4MG DAILY
     Route: 048
     Dates: start: 20100416
  3. BISOPROLOL [Concomitant]
     Indication: DRUG USE FOR UNKNOWN INDICATION
     Dosage: 5MG

REACTIONS (2)
  - ATRIAL FIBRILLATION [None]
  - DRUG DOSE OMISSION [None]
